FAERS Safety Report 6528348-5 (Version None)
Quarter: 2010Q1

REPORT INFORMATION
  Report Type: 
  Country: None (occurrence: None)
  Receive Date: 20100106
  Receipt Date: 20091229
  Transmission Date: 20100710
  Serious: Yes (Hospitalization, Other)
  Sender: FDA-Public Use
  Company Number: US-JNJFOC-20091207676

PATIENT
  Sex: Female
  Weight: 98.88 kg

DRUGS (24)
  1. FENTANYL [Suspect]
     Indication: PAIN IN EXTREMITY
     Route: 062
  2. FENTANYL [Suspect]
     Route: 062
  3. FENTANYL [Suspect]
     Route: 062
  4. FENTANYL [Suspect]
     Indication: ARTHRALGIA
     Route: 062
  5. FENTANYL [Suspect]
     Route: 062
  6. FENTANYL [Suspect]
     Route: 062
  7. FENTANYL [Suspect]
     Indication: BACK PAIN
     Route: 062
  8. FENTANYL [Suspect]
     Route: 062
  9. FENTANYL [Suspect]
     Route: 062
  10. FENTANYL [Suspect]
     Indication: NECK PAIN
     Route: 062
  11. FENTANYL [Suspect]
     Route: 062
  12. FENTANYL [Suspect]
     Route: 062
  13. ESTRADIOL [Concomitant]
     Indication: OESTROGEN REPLACEMENT THERAPY
     Route: 048
  14. VESICARE [Concomitant]
     Indication: BLADDER DISORDER
     Route: 048
  15. ZOLOFT [Concomitant]
     Indication: FIBROMYALGIA
     Route: 048
  16. SYNTHROID [Concomitant]
     Indication: HYPOTHYROIDISM
     Route: 048
  17. KAPIDEX [Concomitant]
     Indication: GASTROOESOPHAGEAL REFLUX DISEASE
     Route: 048
  18. SINGULAIR [Concomitant]
     Indication: ASTHMA
     Route: 048
  19. ZOFRAN [Concomitant]
     Indication: NAUSEA
     Route: 048
  20. AMBIEN [Concomitant]
     Indication: SLEEP DISORDER
     Route: 048
  21. XANAX [Concomitant]
     Indication: SLEEP DISORDER
     Route: 048
  22. LIDODERM [Concomitant]
     Indication: PAIN
     Dosage: 5% PATCH UPTO 3 PATCHES IN ONE DAY
     Route: 062
  23. FLECTOR PATCHES [Concomitant]
     Indication: ANTIINFLAMMATORY THERAPY
     Dosage: 1.3% PATCH DAILY AS NEEDED
     Route: 062
  24. FLEXERIL [Concomitant]
     Indication: MUSCLE SPASMS
     Dosage: 1 OR 2 TABLETS AS NECESSARY
     Route: 048

REACTIONS (6)
  - ABDOMINAL PAIN [None]
  - INCORRECT DOSE ADMINISTERED [None]
  - MENORRHAGIA [None]
  - NAUSEA [None]
  - PRODUCT ADHESION ISSUE [None]
  - WITHDRAWAL SYNDROME [None]
